FAERS Safety Report 24854938 (Version 1)
Quarter: 2025Q1

REPORT INFORMATION
  Report Type: Spontaneous
  Country: ES (occurrence: ES)
  Receive Date: 20250117
  Receipt Date: 20250117
  Transmission Date: 20250409
  Serious: Yes (Hospitalization)
  Sender: CHEPLAPHARM
  Company Number: None

PATIENT
  Age: 47 Year
  Sex: Female

DRUGS (4)
  1. QUETIAPINE [Interacting]
     Active Substance: QUETIAPINE
     Route: 048
     Dates: start: 20190624, end: 20190624
  2. CLONAZEPAM [Interacting]
     Active Substance: CLONAZEPAM
     Route: 048
     Dates: start: 20190624, end: 20190624
  3. TOPIRAMATE [Interacting]
     Active Substance: TOPIRAMATE
     Route: 048
     Dates: start: 20190624, end: 20190624
  4. PHENELZINE [Interacting]
     Active Substance: PHENELZINE
     Route: 048
     Dates: start: 20190624, end: 20190624

REACTIONS (2)
  - Intentional overdose [Recovered/Resolved]
  - Depressed level of consciousness [Recovered/Resolved]

NARRATIVE: CASE EVENT DATE: 20190625
